FAERS Safety Report 14079625 (Version 1)
Quarter: 2017Q4

REPORT INFORMATION
  Report Type: Report from Study
  Country: None (occurrence: US)
  Receive Date: 20171012
  Receipt Date: 20171012
  Transmission Date: 20180321
  Serious: Yes (Other)
  Sender: FDA-Public Use
  Company Number: US-ABBVIE-17K-163-2124943-00

PATIENT
  Age: 58 Year
  Sex: Female

DRUGS (1)
  1. HUMIRA [Suspect]
     Active Substance: ADALIMUMAB
     Indication: RHEUMATOID ARTHRITIS
     Route: 058
     Dates: start: 20170802

REACTIONS (6)
  - Post procedural complication [Unknown]
  - Odynophagia [Unknown]
  - Vomiting [Unknown]
  - Varices oesophageal [Unknown]
  - Nausea [Unknown]
  - Gastrointestinal polyp [Unknown]

NARRATIVE: CASE EVENT DATE: 2017
